FAERS Safety Report 11131412 (Version 1)
Quarter: 2015Q2

REPORT INFORMATION
  Report Type: Spontaneous
  Country: US (occurrence: US)
  Receive Date: 20150522
  Receipt Date: 20150522
  Transmission Date: 20150821
  Serious: No
  Sender: FDA-Public Use
  Company Number: US-TEVA-543995USA

PATIENT
  Sex: Female

DRUGS (2)
  1. PROCHLORPERAZINE. [Suspect]
     Active Substance: PROCHLORPERAZINE
     Dosage: 20 MILLIGRAM DAILY;
     Route: 048
     Dates: start: 20150205, end: 20150224
  2. CIMETIDINE [Suspect]
     Active Substance: CIMETIDINE
     Indication: GASTROOESOPHAGEAL REFLUX DISEASE
     Route: 048
     Dates: start: 20150205, end: 20150224

REACTIONS (4)
  - Pruritus [Unknown]
  - Throat tightness [Unknown]
  - Cough [Unknown]
  - Somnolence [Unknown]
